FAERS Safety Report 20349590 (Version 1)
Quarter: 2022Q1

REPORT INFORMATION
  Report Type: Report from Study
  Country: JP (occurrence: JP)
  Receive Date: 20220119
  Receipt Date: 20220119
  Transmission Date: 20220424
  Serious: Yes (Other)
  Sender: FDA-Public Use
  Company Number: JP-JNJFOC-20220127442

PATIENT

DRUGS (1)
  1. ABIRATERONE ACETATE [Suspect]
     Active Substance: ABIRATERONE ACETATE
     Indication: Prostate cancer
     Dosage: DOSE UNKNOWN
     Route: 048

REACTIONS (3)
  - Fatigue [Unknown]
  - Alanine aminotransferase increased [Unknown]
  - Cholangitis [Unknown]
